FAERS Safety Report 4874077-3 (Version None)
Quarter: 2006Q1

REPORT INFORMATION
  Report Type: 
  Country: None (occurrence: None)
  Receive Date: 20060104
  Receipt Date: 20051227
  Transmission Date: 20060701
  Serious: Yes (Hospitalization, Other)
  Sender: FDA-Public Use
  Company Number: KII-2005-0020397

PATIENT
  Age: 45 Year
  Sex: Female

DRUGS (5)
  1. OXYCODONE HCL [Suspect]
  2. ACETAMINOPHEN [Suspect]
  3. ZOLPIDEM TARTRATE [Suspect]
  4. BENZODIAZEPINE DERIVATIVES [Suspect]
  5. FENTANYL [Suspect]
     Route: 062

REACTIONS (21)
  - ACIDOSIS [None]
  - ALANINE AMINOTRANSFERASE INCREASED [None]
  - AMMONIA INCREASED [None]
  - ANION GAP [None]
  - ASPARTATE AMINOTRANSFERASE INCREASED [None]
  - BACTERIA BLOOD IDENTIFIED [None]
  - BLOOD ALKALINE PHOSPHATASE INCREASED [None]
  - BLOOD BILIRUBIN INCREASED [None]
  - BLOOD CREATININE INCREASED [None]
  - BLOOD POTASSIUM DECREASED [None]
  - BLOOD UREA INCREASED [None]
  - COMA [None]
  - FUNGAL INFECTION [None]
  - HYPOTENSION [None]
  - INTERNATIONAL NORMALISED RATIO INCREASED [None]
  - INTRAVENTRICULAR HAEMORRHAGE [None]
  - LIVER FUNCTION TEST ABNORMAL [None]
  - PROTHROMBIN TIME PROLONGED [None]
  - RESPIRATORY DEPRESSION [None]
  - SINUS TACHYCARDIA [None]
  - TACHYCARDIA [None]
